FAERS Safety Report 25976673 (Version 1)
Quarter: 2025Q4

REPORT INFORMATION
  Report Type: Spontaneous
  Country: EU (occurrence: EU)
  Receive Date: 20251029
  Receipt Date: 20251029
  Transmission Date: 20260117
  Serious: Yes (Life-Threatening)
  Sender: MERCK SHARP & DOHME LLC
  Company Number: None

PATIENT
  Age: 59 Year
  Sex: Male

DRUGS (4)
  1. KEYTRUDA [Suspect]
     Active Substance: PEMBROLIZUMAB
     Indication: Adenocarcinoma gastric
     Dosage: 1ST TREATMENT
     Route: 042
     Dates: start: 20250813, end: 20250813
  2. OXALIPLATIN [Concomitant]
     Active Substance: OXALIPLATIN
     Indication: Adenocarcinoma gastric
     Dosage: 160 MG/160 MG PER TREATMENT
     Route: 042
     Dates: start: 20250813, end: 20250915
  3. FLUOROURACIL [Concomitant]
     Active Substance: FLUOROURACIL
     Indication: Adenocarcinoma gastric
     Dosage: 160 MG/160 MG PER TREATMENT
     Route: 042
     Dates: start: 20250813, end: 20250915
  4. HERCEPTIN [Concomitant]
     Active Substance: TRASTUZUMAB
     Indication: Adenocarcinoma gastric
     Dosage: VARIABLE
     Route: 042
     Dates: start: 20250813, end: 20250915

REACTIONS (1)
  - Immune-mediated myocarditis [Unknown]

NARRATIVE: CASE EVENT DATE: 20250818
